FAERS Safety Report 11724965 (Version 1)
Quarter: 2015Q4

REPORT INFORMATION
  Report Type: Spontaneous
  Country: US (occurrence: US)
  Receive Date: 20151111
  Receipt Date: 20151111
  Transmission Date: 20160304
  Serious: Yes (Hospitalization, Other)
  Sender: FDA-Public Use
  Company Number: US-UCBSA-097264

PATIENT
  Sex: Female
  Weight: 68.3 kg

DRUGS (7)
  1. KEPPRA [Suspect]
     Active Substance: LEVETIRACETAM
     Indication: SEIZURE
     Dosage: 500 MG, 2X/DAY (BID)
     Route: 048
     Dates: start: 2012
  2. KEPPRA [Suspect]
     Active Substance: LEVETIRACETAM
     Dosage: 1000 MG, 2X/DAY (BID)
     Route: 048
     Dates: start: 201309
  3. KEPPRA [Suspect]
     Active Substance: LEVETIRACETAM
     Dosage: 500 MG, 6X/DAY,
     Route: 048
  4. ALEVE [Concomitant]
     Active Substance: NAPROXEN SODIUM
     Dosage: DOSE: PRN
  5. KEPPRA [Suspect]
     Active Substance: LEVETIRACETAM
     Dosage: 500MG 3.5 DAILY
  6. VIMPAT [Suspect]
     Active Substance: LACOSAMIDE
     Dosage: 200 MG, 2X/DAY (BID), EXP DATE: 31-JUL-2018
     Route: 048
     Dates: start: 201309
  7. VIMPAT [Suspect]
     Active Substance: LACOSAMIDE
     Indication: SEIZURE
     Dosage: 200 MG, 3X/DAY (TID)
     Route: 048
     Dates: start: 201212

REACTIONS (2)
  - Seizure [Not Recovered/Not Resolved]
  - Drug dose omission [Recovered/Resolved]
